FAERS Safety Report 9812701 (Version 3)
Quarter: 2014Q1

REPORT INFORMATION
  Report Type: Spontaneous
  Country: PL (occurrence: PL)
  Receive Date: 20140113
  Receipt Date: 20140314
  Transmission Date: 20141002
  Serious: Yes (Hospitalization)
  Sender: FDA-Public Use
  Company Number: PL-AMGEN-POLSP2014001922

PATIENT
  Age: 30 Year
  Sex: Male

DRUGS (5)
  1. ENBREL [Suspect]
     Indication: JUVENILE IDIOPATHIC ARTHRITIS
     Dosage: 50 MG, WEEKLY
     Route: 058
     Dates: start: 20120321, end: 20131025
  2. METYPRED                           /00049601/ [Concomitant]
     Dosage: 4 MG, UNK, 1.5 TABLET/24 H
  3. DICLAC                             /00372302/ [Concomitant]
     Dosage: UNK
  4. CONTROLOC                          /01263201/ [Concomitant]
     Dosage: 20 MG, 1 TABLET
  5. BI-PROFENID [Concomitant]
     Dosage: 150 MG, 1 X 1

REACTIONS (6)
  - Rash macular [Unknown]
  - Rash follicular [Unknown]
  - Skin necrosis [Unknown]
  - Vasculitis necrotising [Unknown]
  - Asthenia [Unknown]
  - Fatigue [Unknown]
